FAERS Safety Report 4425190-6 (Version None)
Quarter: 2004Q3

REPORT INFORMATION
  Report Type: 
  Country: None (occurrence: None)
  Receive Date: 20040812
  Receipt Date: 20040812
  Transmission Date: 20050211
  Serious: Yes (Hospitalization)
  Sender: FDA-Public Use
  Company Number: None

PATIENT
  Age: 55 Year
  Sex: Female
  Weight: 51.2565 kg

DRUGS (18)
  1. CARBOPLATIN [Suspect]
     Indication: NON-SMALL CELL LUNG CANCER
     Dosage: 550 MG IV Q 3 WEEKS
     Route: 042
     Dates: start: 20040526
  2. CARBOPLATIN [Suspect]
     Indication: NON-SMALL CELL LUNG CANCER
     Dosage: 550 MG IV Q 3 WEEKS
     Route: 042
     Dates: start: 20040623
  3. CARBOPLATIN [Suspect]
     Indication: NON-SMALL CELL LUNG CANCER
     Dosage: 550 MG IV Q 3 WEEKS
     Route: 042
     Dates: start: 20040714
  4. GEMZAR [Suspect]
     Indication: NON-SMALL CELL LUNG CANCER
     Dosage: 1550 MG IV DAY 1/8 Q 3 W
     Route: 042
     Dates: start: 20040524
  5. GEMZAR [Suspect]
     Indication: NON-SMALL CELL LUNG CANCER
     Dosage: 1550 MG IV DAY 1/8 Q 3 W
     Route: 042
     Dates: start: 20040602
  6. GEMZAR [Suspect]
     Indication: NON-SMALL CELL LUNG CANCER
     Dosage: 1550 MG IV DAY 1/8 Q 3 W
     Route: 042
     Dates: start: 20040623
  7. GEMZAR [Suspect]
     Indication: NON-SMALL CELL LUNG CANCER
     Dosage: 1550 MG IV DAY 1/8 Q 3 W
     Route: 042
     Dates: start: 20040630
  8. GEMZAR [Suspect]
     Indication: NON-SMALL CELL LUNG CANCER
     Dosage: 1550 MG IV DAY 1/8 Q 3 W
     Route: 042
     Dates: start: 20040714
  9. GEMZAR [Suspect]
     Indication: NON-SMALL CELL LUNG CANCER
     Dosage: 1550 MG IV DAY 1/8 Q 3 W
     Route: 042
     Dates: start: 20040721
  10. PREMARIN [Concomitant]
  11. ZANTAC [Concomitant]
  12. LEVOTHROID [Concomitant]
  13. DURAGESIC [Concomitant]
  14. DECADRON [Concomitant]
  15. ZOFRAN [Concomitant]
  16. PHENERGAN HCL [Concomitant]
  17. LORTAB [Concomitant]
  18. MIRALAX [Concomitant]

REACTIONS (5)
  - DYSPNOEA [None]
  - FATIGUE [None]
  - HAEMOGLOBIN ABNORMAL [None]
  - PLATELET COUNT ABNORMAL [None]
  - SCLERAL HAEMORRHAGE [None]
